FAERS Safety Report 20744184 (Version 2)
Quarter: 2022Q3

REPORT INFORMATION
  Report Type: Spontaneous
  Country: US (occurrence: US)
  Receive Date: 20220425
  Receipt Date: 20220818
  Transmission Date: 20221027
  Serious: No
  Sender: FDA-Public Use
  Company Number: US-GLENMARK PHARMACEUTICALS-2022GMK069975

PATIENT

DRUGS (1)
  1. MOMETASONE FUROATE [Suspect]
     Active Substance: MOMETASONE FUROATE
     Indication: Pruritus
     Dosage: 4 TO 5 DROPS EACH EAR ONCE DAILY AS NEEDED (OTIC ROUTE)
     Route: 050

REACTIONS (2)
  - Product use issue [Unknown]
  - Product closure issue [Unknown]
